FAERS Safety Report 21233388 (Version 2)
Quarter: 2024Q4

REPORT INFORMATION
  Report Type: Report from Study
  Country: US (occurrence: US)
  Receive Date: 20220819
  Receipt Date: 20241106
  Transmission Date: 20250114
  Serious: No
  Sender: ORGANON
  Company Number: US-ORGANON-O2208USA000986

PATIENT
  Sex: Female

DRUGS (2)
  1. ASMANEX [Suspect]
     Active Substance: MOMETASONE FUROATE
     Indication: Asthma
     Dosage: 2 PUFFS TWICE DAILY (120 DOSE)
  2. ASMANEX [Suspect]
     Active Substance: MOMETASONE FUROATE
     Dosage: 2 INHALATIONS TWICE DAILY (120 DOSE)
     Dates: start: 20241017

REACTIONS (6)
  - Asthma [Unknown]
  - Device defective [Unknown]
  - Device malfunction [Unknown]
  - Poor quality device used [Unknown]
  - Product quality issue [Unknown]
  - Wrong technique in device usage process [Unknown]

NARRATIVE: CASE EVENT DATE: 20220807
